FAERS Safety Report 19348611 (Version 1)
Quarter: 2021Q2

REPORT INFORMATION
  Report Type: Spontaneous
  Country: US (occurrence: US)
  Receive Date: 20210528
  Receipt Date: 20210528
  Transmission Date: 20210717
  Serious: Yes (Disabling, Other)
  Sender: FDA-Public Use
  Company Number: None

PATIENT
  Age: 63 Year
  Sex: Female
  Weight: 70.2 kg

DRUGS (14)
  1. CARDIZEM [Concomitant]
     Active Substance: DILTIAZEM HYDROCHLORIDE
  2. ZELAC [Concomitant]
  3. TENEX [Concomitant]
     Active Substance: GUANFACINE HYDROCHLORIDE
  4. VITAMIN E [Concomitant]
     Active Substance: .ALPHA.-TOCOPHEROL
  5. RED YEAST [Concomitant]
     Active Substance: YEAST
  6. PRISTIQ EXTENDED?RELEASE [Concomitant]
     Active Substance: DESVENLAFAXINE SUCCINATE
  7. COZAAR [Concomitant]
     Active Substance: LOSARTAN POTASSIUM
  8. CALCIUM [Concomitant]
     Active Substance: CALCIUM
  9. DICYCLOMINE [Concomitant]
     Active Substance: DICYCLOMINE HYDROCHLORIDE
  10. LECITHIN [Concomitant]
     Active Substance: LECITHIN
  11. NIACIN. [Concomitant]
     Active Substance: NIACIN
  12. FISH OIL [Concomitant]
     Active Substance: FISH OIL
  13. PREVACID [Concomitant]
     Active Substance: LANSOPRAZOLE
  14. RESTASIS [Suspect]
     Active Substance: CYCLOSPORINE
     Indication: DRY EYE
     Dosage: ?          QUANTITY:1 DROP(S);?
     Route: 047
     Dates: start: 20210313, end: 20210410

REACTIONS (6)
  - Vision blurred [None]
  - Blindness unilateral [None]
  - Retinal artery occlusion [None]
  - Loss of personal independence in daily activities [None]
  - Vitreous floaters [None]
  - Optic ischaemic neuropathy [None]

NARRATIVE: CASE EVENT DATE: 20210410
